FAERS Safety Report 7900982-7 (Version None)
Quarter: 2011Q4

REPORT INFORMATION
  Report Type: 
  Country: None (occurrence: None)
  Receive Date: 20111108
  Receipt Date: 20111101
  Transmission Date: 20120403
  Serious: Yes (Other)
  Sender: FDA-Public Use
  Company Number: NO-SANOFI-AVENTIS-2011SA071758

PATIENT
  Age: 70 Year
  Sex: Male

DRUGS (4)
  1. ANTINEOPLASTIC AGENTS [Concomitant]
  2. PREDNISOLONE [Concomitant]
  3. TAXOTERE [Suspect]
     Indication: PROSTATE CANCER
     Route: 042
     Dates: start: 20101201, end: 20110201
  4. GOSERELIN ACETATE [Concomitant]

REACTIONS (1)
  - CATARACT [None]
